FAERS Safety Report 17593492 (Version 1)
Quarter: 2020Q1

REPORT INFORMATION
  Report Type: Spontaneous
  Country: US (occurrence: US)
  Receive Date: 20200327
  Receipt Date: 20200327
  Transmission Date: 20200409
  Serious: No
  Sender: FDA-Public Use
  Company Number: US-TOPROL ACQUISITION LLC-2020-TOP-000079

PATIENT
  Sex: Male

DRUGS (3)
  1. MAGNESIUM [Suspect]
     Active Substance: MAGNESIUM
     Dosage: 200 MG OR 400 MG TWICE DAILY
  2. CHOLESTEROL MEDICATION [Suspect]
     Active Substance: UNSPECIFIED INGREDIENT
  3. METOPROLOL SUCCINATE. [Suspect]
     Active Substance: METOPROLOL SUCCINATE
     Indication: ARRHYTHMIA
     Dosage: 20 OR 25 MG, ONE TABLET A DAY

REACTIONS (2)
  - Diarrhoea [Unknown]
  - Off label use [Unknown]
